FAERS Safety Report 22166996 (Version 1)
Quarter: 2023Q1

REPORT INFORMATION
  Report Type: Spontaneous
  Country: US (occurrence: None)
  Receive Date: 20230331
  Receipt Date: 20230331
  Transmission Date: 20230417
  Serious: Yes (Hospitalization)
  Sender: FDA-Public Use
  Company Number: None

PATIENT
  Sex: Male

DRUGS (8)
  1. PREVYMIS [Suspect]
     Active Substance: LETERMOVIR
     Indication: Stem cell transplant
     Route: 048
  2. LISINOPIRL TAB [Concomitant]
  3. LORAZEPAM TAB [Concomitant]
  4. ONDANSETRON TAB [Concomitant]
  5. PROCHLORPER TAB [Concomitant]
  6. ROPINIROLE TAB [Concomitant]
  7. TEMAZEPAM [Concomitant]
     Active Substance: TEMAZEPAM
  8. ZOLPIDEM TAB [Concomitant]

REACTIONS (1)
  - Hospitalisation [None]
